FAERS Safety Report 4312870-6 (Version None)
Quarter: 2004Q1

REPORT INFORMATION
  Report Type: 
  Country: None (occurrence: None)
  Receive Date: 20040304
  Receipt Date: 20040224
  Transmission Date: 20041129
  Serious: Yes (Hospitalization)
  Sender: FDA-Public Use
  Company Number: 2004012625

PATIENT
  Age: 24 Year
  Sex: Male

DRUGS (8)
  1. AZITHROMYCIN [Suspect]
     Indication: ILL-DEFINED DISORDER
     Dosage: 600 MG (DAILY)
     Dates: start: 20031205
  2. ATAZANAVIR (ATAZANAVIR) [Suspect]
     Indication: HIV INFECTION
     Dosage: 300 MG (DAILY), ORAL
     Route: 048
     Dates: start: 20030704
  3. DIDANOSINE (DIDANOSINE) [Suspect]
     Indication: HIV INFECTION
     Dosage: 250 MG (DAILY)
     Dates: start: 20030704
  4. ETHAMBUTOL HCL [Suspect]
     Indication: ILL-DEFINED DISORDER
     Dosage: 800 MG (DAILY)
     Dates: start: 20031205
  5. LAMIVUDINE (LAMIVUDINE) [Concomitant]
  6. TENOFOVIR (TENOFOVIR) [Concomitant]
  7. KALETRA [Concomitant]
  8. BACTRIM [Concomitant]

REACTIONS (1)
  - ABDOMINAL PAIN [None]
